FAERS Safety Report 9630554 (Version 1)
Quarter: 2013Q4

REPORT INFORMATION
  Report Type: Report from Study
  Country: KR (occurrence: KR)
  Receive Date: 20131018
  Receipt Date: 20131018
  Transmission Date: 20140711
  Serious: Yes (Hospitalization)
  Sender: FDA-Public Use
  Company Number: PHHY2013KR112911

PATIENT
  Age: 64 Year
  Sex: Male
  Weight: 55.4 kg

DRUGS (4)
  1. AMN107 [Suspect]
     Indication: CHRONIC MYELOID LEUKAEMIA
     Dosage: 600 MG, UNK
     Route: 048
     Dates: start: 20130906
  2. SPIRONOLACTONE [Concomitant]
     Dosage: 100 MG, UNK
     Dates: start: 20130905, end: 20130925
  3. NEXIUM//ESOMEPRAZOLE MAGNESIUM [Concomitant]
     Indication: GASTROOESOPHAGEAL REFLUX DISEASE
     Dosage: 40 MG, UNK
     Dates: start: 20130905, end: 20130925
  4. FUROSEMIDE [Concomitant]
     Dosage: 40 MG, UNK
     Dates: start: 20130905, end: 20130925

REACTIONS (1)
  - Varices oesophageal [Recovering/Resolving]
